FAERS Safety Report 4879653-X (Version None)
Quarter: 2006Q1

REPORT INFORMATION
  Report Type: 
  Country: None (occurrence: None)
  Receive Date: 20060113
  Receipt Date: 20060102
  Transmission Date: 20060701
  Serious: Yes (Hospitalization, Other)
  Sender: FDA-Public Use
  Company Number: PHBS2006CZ00477

PATIENT
  Age: 50 Year
  Sex: Male

DRUGS (8)
  1. CYCLOSPORINE [Suspect]
     Indication: RENAL TRANSPLANT
     Dosage: 1.9 ML, BID
  2. AZATHIOPRINE [Concomitant]
     Dosage: 75 MG/D (50-0-25 MG)
  3. PREDNISONE [Concomitant]
     Dosage: 30 MG/D (20-0-10 MG)
  4. METHYLPREDNISOLONE [Concomitant]
     Indication: KIDNEY TRANSPLANT REJECTION
     Dosage: 500 MG/DAY
  5. METHYLPREDNISOLONE [Concomitant]
     Dosage: 250 MG/DAY
  6. OXACILLIN [Concomitant]
     Dosage: 2 G, QID
  7. DALACIN C [Concomitant]
     Dosage: 300 MEQ, QID
  8. CIPRINOL [Concomitant]
     Dosage: 200 MG, BID

REACTIONS (6)
  - KIDNEY TRANSPLANT REJECTION [None]
  - LESION EXCISION [None]
  - NEPHROGENIC FIBROSING DERMOPATHY [None]
  - PERINEPHRIC ABSCESS [None]
  - SOFT TISSUE DISORDER [None]
  - STAPHYLOCOCCAL INFECTION [None]
